FAERS Safety Report 9269069 (Version 2)
Quarter: 2013Q2

REPORT INFORMATION
  Report Type: Spontaneous
  Country: FR (occurrence: FR)
  Receive Date: 20130503
  Receipt Date: 20130503
  Transmission Date: 20140414
  Serious: Yes (Hospitalization)
  Sender: FDA-Public Use
  Company Number: FR-009507513-1209FRA002624

PATIENT
  Sex: Female
  Weight: 90 kg

DRUGS (2)
  1. DIPROSTENE [Suspect]
     Indication: JOINT EFFUSION
     Dosage: 1 DF, ONCE
     Dates: start: 20100527, end: 20100527
  2. DIPROSTENE [Suspect]
     Indication: OSTEOARTHRITIS

REACTIONS (2)
  - Diabetes mellitus [Unknown]
  - Adrenal insufficiency [Unknown]
